FAERS Safety Report 9065447 (Version 1)
Quarter: 2013Q1

REPORT INFORMATION
  Report Type: Report from Study
  Country: CA (occurrence: CA)
  Receive Date: 20130214
  Receipt Date: 20130214
  Transmission Date: 20140127
  Serious: Yes (Other)
  Sender: FDA-Public Use
  Company Number: CA-JNJFOC-20130202206

PATIENT
  Age: 63 None
  Sex: Male
  Weight: 85 kg

DRUGS (10)
  1. REMICADE [Suspect]
     Indication: COLITIS ULCERATIVE
     Route: 042
     Dates: start: 20090916
  2. ASA [Concomitant]
     Route: 065
  3. MEZAVANT [Concomitant]
     Dosage: 2-4 GRAMS
     Route: 065
  4. FISH OIL [Concomitant]
     Dosage: 2 TABLESPOONS
     Route: 065
  5. CALCIUM [Concomitant]
     Route: 065
  6. MAGNESIUM [Concomitant]
     Route: 065
  7. PROBIOTIC [Concomitant]
     Route: 065
  8. CRESTOR [Concomitant]
     Route: 065
  9. METOPROLOL [Concomitant]
     Route: 065
  10. DILTIAZ [Concomitant]
     Route: 065

REACTIONS (1)
  - Polypectomy [Unknown]
